FAERS Safety Report 7299607-6 (Version None)
Quarter: 2011Q1

REPORT INFORMATION
  Report Type: 
  Country: None (occurrence: None)
  Receive Date: 20110217
  Receipt Date: 20110208
  Transmission Date: 20110831
  Serious: Yes (Hospitalization)
  Sender: FDA-Public Use
  Company Number: US-BAXTER-2011BH000557

PATIENT
  Age: 31 Year
  Sex: Male

DRUGS (1)
  1. DIANEAL [Suspect]
     Indication: PERITONEAL DIALYSIS
     Route: 033
     Dates: start: 20101026

REACTIONS (4)
  - LETHARGY [None]
  - PNEUMONIA [None]
  - LISTLESS [None]
  - BODY TEMPERATURE [None]
